FAERS Safety Report 15504716 (Version 1)
Quarter: 2018Q4

REPORT INFORMATION
  Report Type: Spontaneous
  Country: US (occurrence: US)
  Receive Date: 20181010
  Receipt Date: 20181010
  Transmission Date: 20190205
  Serious: No
  Sender: FDA-Public Use
  Company Number: None

PATIENT
  Age: 61 Year
  Sex: Female

DRUGS (1)
  1. VERZENIO [Suspect]
     Active Substance: ABEMACICLIB
     Dates: start: 20180920

REACTIONS (13)
  - Weight increased [None]
  - Nausea [None]
  - Fatigue [None]
  - Headache [None]
  - Decreased appetite [None]
  - Hyperhidrosis [None]
  - Constipation [None]
  - Weight decreased [None]
  - Abdominal pain [None]
  - Vomiting [None]
  - Diarrhoea [None]
  - Dizziness [None]
  - Hot flush [None]

NARRATIVE: CASE EVENT DATE: 20181008
